FAERS Safety Report 16978526 (Version 1)
Quarter: 2019Q4

REPORT INFORMATION
  Report Type: Spontaneous
  Country: DE (occurrence: DE)
  Receive Date: 20191031
  Receipt Date: 20191031
  Transmission Date: 20200122
  Serious: Yes (Other)
  Sender: FDA-Public Use
  Company Number: DE-TEVA-2019-DE-1130828

PATIENT
  Age: 64 Year
  Sex: Male

DRUGS (12)
  1. MYCOPHENOLATE MOFETIL. [Suspect]
     Active Substance: MYCOPHENOLATE MOFETIL
     Route: 065
  2. PREDNISONE. [Suspect]
     Active Substance: PREDNISONE
     Route: 065
  3. UNSPECIFIED ALBUMIN [Concomitant]
     Indication: FOCAL SEGMENTAL GLOMERULOSCLEROSIS
     Dosage: 26 TIMES
     Route: 065
     Dates: start: 201606
  4. TACROLIMUS. [Suspect]
     Active Substance: TACROLIMUS
     Indication: IMMUNOSUPPRESSANT DRUG THERAPY
     Dosage: INITIAL DOSAGE NOT STATED
     Route: 065
     Dates: start: 2016
  5. PREDNISONE. [Suspect]
     Active Substance: PREDNISONE
     Route: 065
  6. TACROLIMUS. [Suspect]
     Active Substance: TACROLIMUS
     Dosage: TROUGH LEVEL OF 5-8 NG/ML
     Route: 065
  7. FRESH FROZEN PLASMA [Concomitant]
     Active Substance: HUMAN PLASMA
     Indication: FOCAL SEGMENTAL GLOMERULOSCLEROSIS
     Dosage: 26 TIMES
     Route: 065
     Dates: start: 201606
  8. MYCOPHENOLATE MOFETIL. [Suspect]
     Active Substance: MYCOPHENOLATE MOFETIL
     Indication: IMMUNOSUPPRESSANT DRUG THERAPY
     Dosage: INITIAL DOSAGE NOT STATED
     Route: 065
     Dates: start: 2016
  9. PREDNISONE. [Suspect]
     Active Substance: PREDNISONE
     Indication: IMMUNOSUPPRESSANT DRUG THERAPY
     Dosage: INITIAL DOSAGE NOT STATED
     Route: 065
     Dates: start: 2016
  10. RIBAVIRIN. [Suspect]
     Active Substance: RIBAVIRIN
     Indication: HEPATITIS E
     Dosage: FIVE DOSES DAILY; 11 WEEK COURSE
     Route: 065
     Dates: start: 201709
  11. MYCOPHENOLATE MOFETIL. [Suspect]
     Active Substance: MYCOPHENOLATE MOFETIL
     Route: 065
  12. RITUXIMAB. [Suspect]
     Active Substance: RITUXIMAB
     Indication: FOCAL SEGMENTAL GLOMERULOSCLEROSIS
     Dosage: TWICE
     Route: 065
     Dates: start: 201606

REACTIONS (4)
  - Hepatitis E [Recovered/Resolved]
  - BK virus infection [Recovering/Resolving]
  - Off label use [Unknown]
  - Anaemia [Unknown]

NARRATIVE: CASE EVENT DATE: 201609
